FAERS Safety Report 8520649-4 (Version None)
Quarter: 2012Q3

REPORT INFORMATION
  Report Type: 
  Country: None (occurrence: None)
  Receive Date: 20120705
  Receipt Date: 20120626
  Transmission Date: 20120928
  Serious: Yes (Hospitalization)
  Sender: FDA-Public Use
  Company Number: 2012153200

PATIENT
  Age: 67 Year
  Sex: Female

DRUGS (10)
  1. ROCEPHIN [Suspect]
     Indication: PNEUMONIA BACTERIAL
     Dosage: 2 G, 1X/DAY, INTRAVENOUS
     Route: 042
     Dates: start: 20120323, end: 20120405
  2. METHOTREXATE [Suspect]
     Indication: PSORIATIC ARTHROPATHY
     Dosage: 1 DF, 1X/DAY, ORAL
     Route: 048
     Dates: start: 20050801, end: 20120404
  3. IBUPROFEN [Suspect]
     Indication: BACK DISORDER
     Dosage: 1 DF PER DAY, ORAL
     Route: 048
     Dates: start: 20120301, end: 20120404
  4. PREDNISONE [Suspect]
     Indication: PSORIATIC ARTHROPATHY
     Dosage: 10 MG, 1X/DAY, ORAL
     Route: 048
     Dates: start: 20050801
  5. ESCITALOPRAM OXALATE [Suspect]
     Dosage: 10 MG, 1X/DAY,
  6. CALCIMAGON-D3 (CALCIUM CARBONATE, COLECALCIFEROL) [Concomitant]
  7. RAMIPRIL [Concomitant]
  8. FRAGMIN [Suspect]
     Indication: PROPHYLAXIS
     Dosage: 5000 IU, 1X/DAY, SUBCUTANEOUS
     Route: 058
     Dates: start: 20120301, end: 20120404
  9. CLARITHROMYCIN [Suspect]
     Indication: PNEUMONIA BACTERIAL
     Dosage: 500 MG, 2X/DAY, ORAL
     Route: 048
     Dates: start: 20120323, end: 20120405
  10. PANTOPRAZOLE SODIUM [Concomitant]

REACTIONS (11)
  - STRESS FRACTURE [None]
  - BACK DISORDER [None]
  - HAEMORRHAGIC ANAEMIA [None]
  - PNEUMONIA BACTERIAL [None]
  - CYTOMEGALOVIRUS TEST POSITIVE [None]
  - DIVERTICULUM [None]
  - HAEMORRHOIDS [None]
  - DRUG INTERACTION [None]
  - ENTEROCOLITIS HAEMORRHAGIC [None]
  - LOWER GASTROINTESTINAL HAEMORRHAGE [None]
  - FRACTURED SACRUM [None]
